FAERS Safety Report 7960402-3 (Version None)
Quarter: 2011Q4

REPORT INFORMATION
  Report Type: 
  Country: None (occurrence: None)
  Receive Date: 20111206
  Receipt Date: 20111205
  Transmission Date: 20120403
  Serious: Yes (Life-Threatening, Hospitalization, Other)
  Sender: FDA-Public Use
  Company Number: JP-ABBOTT-11P-087-0700827-00

PATIENT
  Sex: Male
  Weight: 63 kg

DRUGS (7)
  1. AMLODIPINE [Suspect]
     Indication: HYPERTENSION
     Route: 048
     Dates: start: 20030307
  2. CALCIUM CARBONATE [Suspect]
     Indication: HYPERLIPIDAEMIA
     Route: 048
     Dates: start: 20030307
  3. CIBENOL [Interacting]
     Indication: ARRHYTHMIA
     Route: 048
     Dates: start: 20030101, end: 20100429
  4. LOSARTAN POTASSIUM [Suspect]
     Indication: HYPERTENSION
     Route: 048
     Dates: start: 20030307
  5. ALLOPURINOL [Suspect]
     Indication: HYPERURICAEMIA
     Route: 048
     Dates: start: 20030307
  6. ROXATIDINE ACETATE HCL [Suspect]
     Indication: GASTRITIS
     Route: 048
     Dates: start: 20030307
  7. CLARITHROMYCIN [Interacting]
     Indication: UPPER RESPIRATORY TRACT INFECTION
     Route: 048
     Dates: start: 20100428, end: 20100429

REACTIONS (3)
  - DRUG INTERACTION [None]
  - HYPOGLYCAEMIC COMA [None]
  - PNEUMONIA ASPIRATION [None]
